FAERS Safety Report 6145503-7 (Version None)
Quarter: 2009Q2

REPORT INFORMATION
  Report Type: 
  Country: None (occurrence: None)
  Receive Date: 20090402
  Receipt Date: 20090318
  Transmission Date: 20091009
  Serious: Yes (Hospitalization)
  Sender: FDA-Public Use
  Company Number: 2009000206

PATIENT
  Age: 53 Year
  Sex: Female

DRUGS (12)
  1. ERLOTINIB (ERLOTINIB) (TABLET) (ERLOTINIB) [Suspect]
     Indication: BRAIN NEOPLASM MALIGNANT
     Dosage: (150 MG, QD), ORAL
     Route: 048
     Dates: start: 20080512
  2. OXYCONTIN [Concomitant]
  3. GABAPENTIN [Concomitant]
  4. MORPHINE SULFATE [Concomitant]
  5. DICLOFENAC (DICLOFENAC) [Concomitant]
  6. DOMPERIDONE (DOMPERIDONE) [Concomitant]
  7. RANITIDINE [Concomitant]
  8. LOPERAMIDE (LOPRAMIDE) [Concomitant]
  9. TRAMADOL HCL [Concomitant]
  10. ORAMORPH SR [Concomitant]
  11. TRIDIL [Concomitant]
  12. PEPPERMINT OIL (PEPPERMINT OIL) [Concomitant]

REACTIONS (3)
  - AMNESIA [None]
  - BLOOD ALKALINE PHOSPHATASE INCREASED [None]
  - CONFUSIONAL STATE [None]
